FAERS Safety Report 7965114-8 (Version None)
Quarter: 2011Q4

REPORT INFORMATION
  Report Type: 
  Country: None (occurrence: None)
  Receive Date: 20111208
  Receipt Date: 20111128
  Transmission Date: 20120403
  Serious: Yes (Hospitalization, Other)
  Sender: FDA-Public Use
  Company Number: US-BAYER-2011-057065

PATIENT
  Age: 37 Year
  Sex: Female

DRUGS (4)
  1. CYMBALTA [Concomitant]
     Dosage: UNK
     Dates: start: 20071214, end: 20100601
  2. YAZ [Suspect]
     Indication: MENSTRUATION IRREGULAR
     Dosage: UNK
     Route: 048
     Dates: start: 20080403, end: 20091203
  3. YAZ [Suspect]
     Indication: PREMENSTRUAL SYNDROME
  4. YAZ [Suspect]
     Indication: CONTRACEPTION

REACTIONS (16)
  - FEAR [None]
  - FATIGUE [None]
  - DIARRHOEA [None]
  - CHOLECYSTITIS CHRONIC [None]
  - GASTROENTERITIS [None]
  - PULMONARY EMBOLISM [None]
  - HAEMOPTYSIS [None]
  - THROMBOSIS [None]
  - NAUSEA [None]
  - DYSPNOEA [None]
  - ABDOMINAL PAIN UPPER [None]
  - CHEST PAIN [None]
  - ABDOMINAL PAIN [None]
  - GALLBLADDER DISORDER [None]
  - OVARIAN CYST [None]
  - LIVER FUNCTION TEST ABNORMAL [None]
